FAERS Safety Report 9226821 (Version 1)
Quarter: 2013Q2

REPORT INFORMATION
  Report Type: Spontaneous
  Country: US (occurrence: None)
  Receive Date: 20130410
  Receipt Date: 20130410
  Transmission Date: 20140414
  Serious: Yes (Other)
  Sender: FDA-Public Use
  Company Number: 2013030128

PATIENT
  Sex: Male

DRUGS (2)
  1. COLYTE [Suspect]
     Dosage: ORAL
     Route: 048
  2. DULCOLAX (BISACODYL) [Suspect]

REACTIONS (1)
  - Colitis ischaemic [None]
